FAERS Safety Report 19973251 (Version 1)
Quarter: 2021Q4

REPORT INFORMATION
  Report Type: Spontaneous
  Country: US (occurrence: US)
  Receive Date: 20211019
  Receipt Date: 20211019
  Transmission Date: 20220303
  Serious: No
  Sender: FDA-Public Use
  Company Number: None

PATIENT
  Sex: Female

DRUGS (1)
  1. STELARA [Suspect]
     Active Substance: USTEKINUMAB
     Indication: Crohn^s disease
     Dosage: OTHER FREQUENCY:EVERY 8 WEEKS;
     Route: 058
     Dates: start: 20210406

REACTIONS (4)
  - Therapy non-responder [None]
  - Symptom recurrence [None]
  - Hypophagia [None]
  - Weight decreased [None]
